FAERS Safety Report 9270691 (Version 5)
Quarter: 2014Q1

REPORT INFORMATION
  Report Type: Spontaneous
  Country: DE (occurrence: DE)
  Receive Date: 20130503
  Receipt Date: 20140214
  Transmission Date: 20141002
  Serious: Yes (Disabling, Other)
  Sender: FDA-Public Use
  Company Number: DE-TEVA-401477GER

PATIENT
  Sex: Female

DRUGS (2)
  1. COPAXONE [Suspect]
     Indication: MULTIPLE SCLEROSIS
     Dates: end: 2013
  2. CORTISONE [Concomitant]
     Indication: PROPHYLAXIS

REACTIONS (10)
  - Multiple sclerosis relapse [Recovering/Resolving]
  - Progressive multiple sclerosis [Not Recovered/Not Resolved]
  - Drug ineffective [Recovered/Resolved]
  - Gait disturbance [Recovering/Resolving]
  - Paresis [Recovering/Resolving]
  - Asthenia [Recovering/Resolving]
  - Hypoaesthesia [Recovering/Resolving]
  - Hypoaesthesia [Recovering/Resolving]
  - Off label use [Recovered/Resolved]
  - Fatigue [Recovering/Resolving]
